FAERS Safety Report 7068932-6 (Version None)
Quarter: 2010Q4

REPORT INFORMATION
  Report Type: 
  Country: None (occurrence: None)
  Receive Date: 20101028
  Receipt Date: 20101018
  Transmission Date: 20110411
  Serious: Yes (Other)
  Sender: FDA-Public Use
  Company Number: PHHY2009JP31798

PATIENT
  Sex: Female

DRUGS (1)
  1. GLEEVEC [Suspect]
     Indication: CHRONIC MYELOID LEUKAEMIA
     Route: 048

REACTIONS (17)
  - ASTHENIA [None]
  - DECREASED APPETITE [None]
  - DEPRESSED MOOD [None]
  - DRY SKIN [None]
  - ECZEMA [None]
  - EYELID OEDEMA [None]
  - FACE OEDEMA [None]
  - GENERAL PHYSICAL HEALTH DETERIORATION [None]
  - HYPOAESTHESIA [None]
  - ISCHAEMIC CEREBRAL INFARCTION [None]
  - LAGOPHTHALMOS [None]
  - MALAISE [None]
  - NAIL DISORDER [None]
  - NERVOUSNESS [None]
  - PRURITUS [None]
  - TEMPERATURE INTOLERANCE [None]
  - WEIGHT INCREASED [None]
